FAERS Safety Report 18437795 (Version 1)
Quarter: 2020Q4

REPORT INFORMATION
  Report Type: Spontaneous
  Country: IL (occurrence: IL)
  Receive Date: 20201028
  Receipt Date: 20201028
  Transmission Date: 20210114
  Serious: Yes (Hospitalization)
  Sender: FDA-Public Use
  Company Number: IL-EISAI MEDICAL RESEARCH-EC-2020-082553

PATIENT
  Sex: Female

DRUGS (1)
  1. LENVIMA [Suspect]
     Active Substance: LENVATINIB
     Indication: ADENOID CYSTIC CARCINOMA
     Dosage: DOSAGE AND FREQUENCY UNKNOWN
     Route: 048
     Dates: start: 202005, end: 2020

REACTIONS (1)
  - Fistula [Unknown]

NARRATIVE: CASE EVENT DATE: 2020
